FAERS Safety Report 13353341 (Version 4)
Quarter: 2017Q3

REPORT INFORMATION
  Report Type: Report from Study
  Country: CO (occurrence: CO)
  Receive Date: 20170321
  Receipt Date: 20170702
  Transmission Date: 20171127
  Serious: Yes (Hospitalization)
  Sender: FDA-Public Use
  Company Number: CO-ROCHE-1856961

PATIENT
  Age: 54 Year
  Sex: Female

DRUGS (1)
  1. HERCEPTIN [Suspect]
     Active Substance: TRASTUZUMAB
     Indication: BREAST CANCER
     Route: 042
     Dates: start: 20160520, end: 20161028

REACTIONS (5)
  - Back pain [Unknown]
  - Asthenia [Unknown]
  - Cellulitis [Recovered/Resolved]
  - Dyspnoea [Unknown]
  - Breast pain [Unknown]

NARRATIVE: CASE EVENT DATE: 201701
